FAERS Safety Report 12428215 (Version 1)
Quarter: 2016Q2

REPORT INFORMATION
  Report Type: Spontaneous
  Country: US (occurrence: None)
  Receive Date: 20160601
  Receipt Date: 20160601
  Transmission Date: 20160815
  Serious: Yes (Hospitalization, Disabling, Other)
  Sender: FDA-Public Use
  Company Number: None

PATIENT
  Age: 48 Year
  Sex: Female
  Weight: 80.74 kg

DRUGS (1)
  1. LEVAQUIN [Suspect]
     Active Substance: LEVOFLOXACIN
     Indication: SINUSITIS
     Route: 048

REACTIONS (7)
  - Tendon rupture [None]
  - Neuropathy peripheral [None]
  - Back disorder [None]
  - Cataract [None]
  - Feeling abnormal [None]
  - Joint swelling [None]
  - Gait disturbance [None]
